FAERS Safety Report 4941615-1 (Version None)
Quarter: 2006Q1

REPORT INFORMATION
  Report Type: 
  Country: None (occurrence: None)
  Receive Date: 20060307
  Receipt Date: 20060220
  Transmission Date: 20060701
  Serious: Yes (Hospitalization, Other)
  Sender: FDA-Public Use
  Company Number: 2006AL000493

PATIENT
  Age: 44 Year
  Sex: Female

DRUGS (6)
  1. CARBAMAZEPINE [Suspect]
     Dosage: 400 MG; BID; PO
     Route: 048
  2. PAROXETINE HCL [Concomitant]
  3. RISPERIDONE [Concomitant]
  4. BUSPIRONE [Concomitant]
  5. NADOLOL [Concomitant]
  6. HYDROXYZINE [Concomitant]

REACTIONS (15)
  - BLOOD CHLORIDE DECREASED [None]
  - BLOOD OSMOLARITY DECREASED [None]
  - CONFUSIONAL STATE [None]
  - CONVULSION [None]
  - DIZZINESS [None]
  - GRAND MAL CONVULSION [None]
  - HYPONATRAEMIA [None]
  - INCORRECT DOSE ADMINISTERED [None]
  - LOSS OF CONSCIOUSNESS [None]
  - NYSTAGMUS [None]
  - SENSATION OF BLOOD FLOW [None]
  - SYNCOPE [None]
  - TREMOR [None]
  - URINE SODIUM DECREASED [None]
  - VISUAL DISTURBANCE [None]
